FAERS Safety Report 5925915-4 (Version None)
Quarter: 2008Q4

REPORT INFORMATION
  Report Type: 
  Country: None (occurrence: None)
  Receive Date: 20081021
  Receipt Date: 20081013
  Transmission Date: 20090506
  Serious: Yes (Other)
  Sender: FDA-Public Use
  Company Number: US-PFIZER INC-2008086383

PATIENT
  Sex: Female
  Weight: 145.2 kg

DRUGS (5)
  1. CELEBREX [Suspect]
     Indication: RHEUMATOID ARTHRITIS
     Route: 048
  2. CELEBREX [Suspect]
     Indication: OSTEOARTHRITIS
  3. ALL OTHER THERAPEUTIC PRODUCTS [Concomitant]
  4. PREDNISONE TAB [Concomitant]
  5. METHOTREXATE [Concomitant]

REACTIONS (3)
  - ABNORMAL DREAMS [None]
  - HYPERTENSION [None]
  - THYROID DISORDER [None]
